FAERS Safety Report 6565714-6 (Version None)
Quarter: 2010Q1

REPORT INFORMATION
  Report Type: 
  Country: None (occurrence: None)
  Receive Date: 20100201
  Receipt Date: 20100122
  Transmission Date: 20100710
  Serious: Yes (Disabling, Other)
  Sender: FDA-Public Use
  Company Number: NL-AMGEN-US386671

PATIENT
  Age: 55 Year
  Sex: Female
  Weight: 66 kg

DRUGS (7)
  1. ENBREL [Suspect]
     Indication: RHEUMATOID ARTHRITIS
     Route: 058
     Dates: start: 20071201
  2. PREDNISONE [Suspect]
     Indication: RHEUMATOID ARTHRITIS
     Dosage: FIRST 7.5 MG PER DAY, THEN REDUCED TO 5 MG PER DAY
     Route: 048
  3. PREDNISONE [Suspect]
     Route: 048
  4. TEMAZEPAM [Concomitant]
     Route: 065
  5. OMEPRAZOLE [Concomitant]
     Route: 065
  6. NAPROXEN [Concomitant]
     Dosage: 500 MG AS NEEDED
     Route: 065
  7. ALENDRONIC ACID [Concomitant]
     Route: 065

REACTIONS (3)
  - CONDITION AGGRAVATED [None]
  - VISION BLURRED [None]
  - VISUAL ACUITY REDUCED [None]
